FAERS Safety Report 7956224-X (Version None)
Quarter: 2011Q4

REPORT INFORMATION
  Report Type: 
  Country: None (occurrence: None)
  Receive Date: 20111205
  Receipt Date: 20111129
  Transmission Date: 20120403
  Serious: Yes (Hospitalization)
  Sender: FDA-Public Use
  Company Number: US-BRISTOL-MYERS SQUIBB COMPANY-16162554

PATIENT
  Age: 51 Year
  Sex: Male
  Weight: 68 kg

DRUGS (15)
  1. OXYCODONE HCL [Concomitant]
     Dosage: EVERY 4HRS
     Route: 048
  2. CISPLATIN [Suspect]
     Indication: HEAD AND NECK CANCER
     Dosage: ALSO ON 25OCT11 19OCT-25OCT2011
     Route: 042
     Dates: start: 20111019
  3. DECADRON [Concomitant]
     Route: 048
  4. ISOSORBIDE DINITRATE [Concomitant]
     Dosage: 1DF=60ML/HR FOR 16HRS/DAY
  5. COMPAZINE [Concomitant]
     Route: 048
  6. FLUCONAZOLE [Concomitant]
     Dosage: PEG TUBE
  7. ATIVAN [Concomitant]
     Dosage: ALSO 3PER DAY
     Route: 048
  8. DOXYCYCLINE [Concomitant]
     Route: 048
  9. CARBOPLATIN [Suspect]
     Indication: HEAD AND NECK CANCER
     Dosage: 1DF= 2AUC,01NOV11-23NOV11
     Dates: start: 20111101
  10. AMARYL [Concomitant]
     Route: 048
  11. FLOMAX [Concomitant]
     Dosage: 0.4MG PEG TUBE DAILY.
  12. METFORMIN HCL [Concomitant]
     Route: 048
  13. NOVOLOG [Concomitant]
     Dosage: 1DF=2 UNITS BEFORE MEALS.
     Route: 058
  14. ERBITUX [Suspect]
     Indication: HEAD AND NECK CANCER
     Dosage: FROM 12AUG11, 400MG/M2 LOADING DOSE 19AUG-26AUG11, 19-25OCT11.,250MG/M2 WEEKS 2 AND 3 1-23NOV11
     Route: 042
     Dates: start: 20110812
  15. LISINOPRIL [Concomitant]

REACTIONS (15)
  - DIZZINESS [None]
  - NAUSEA [None]
  - DYSPNOEA [None]
  - HYPOXIA [None]
  - RENAL FAILURE ACUTE [None]
  - VOMITING [None]
  - DECREASED APPETITE [None]
  - DEHYDRATION [None]
  - HEADACHE [None]
  - CONSTIPATION [None]
  - HYPOGLYCAEMIA [None]
  - PRESYNCOPE [None]
  - HEARING IMPAIRED [None]
  - HYPOTENSION [None]
  - WEIGHT DECREASED [None]
